FAERS Safety Report 12899864 (Version 3)
Quarter: 2017Q1

REPORT INFORMATION
  Report Type: Spontaneous
  Country: US (occurrence: US)
  Receive Date: 20161101
  Receipt Date: 20170117
  Transmission Date: 20170428
  Serious: No
  Sender: FDA-Public Use
  Company Number: US-PFIZER INC-2016333985

PATIENT
  Age: 68 Year
  Sex: Female
  Weight: 49.9 kg

DRUGS (23)
  1. METOPROLOL SUCC CT [Concomitant]
     Dosage: 100 MG, DAILY (MORNING + NIGHT)
  2. CLONIDINE HCL [Concomitant]
     Active Substance: CLONIDINE HYDROCHLORIDE
     Dosage: 0.1 MG, AS NEEDED
  3. LYRICA [Suspect]
     Active Substance: PREGABALIN
     Dosage: 100 MG, 2X/DAY
     Route: 048
     Dates: start: 201607
  4. AZATHIOPRINE. [Concomitant]
     Active Substance: AZATHIOPRINE
     Dosage: 100 MG, DAILY
  5. PREDNISONE. [Concomitant]
     Active Substance: PREDNISONE
     Dosage: 10 MG, DAILY
  6. VITAMIN D3 [Concomitant]
     Active Substance: CHOLECALCIFEROL
     Dosage: 10000 IU, 2X/WEEK
  7. CITRACAL PLUS VIT D3 [Concomitant]
     Dosage: UNK UNK, 2X/DAY [CALCIUM CITRATE 400MG]/[ERGOCALCIFEROL 500 IU] 1 + 1/2 TABS 2 TIMES DAILY
  8. VITAMINS NOS [Concomitant]
     Active Substance: VITAMINS
     Dosage: UNK, DAILY (BIOTIN FORTE 3MG WITH ZINC 1 DAILY)
  9. LYRICA [Suspect]
     Active Substance: PREGABALIN
     Indication: NEUROPATHY PERIPHERAL
     Dosage: 100 MG, 2X/DAY
     Route: 048
  10. TRAMADOL. [Concomitant]
     Active Substance: TRAMADOL
     Dosage: 50 MG, AS NEEDED
  11. LISINOPRIL. [Concomitant]
     Active Substance: LISINOPRIL
     Dosage: 20 MG, DAILY  (AT NIGHT)
  12. BALSALAZIDE DISODIUM. [Concomitant]
     Active Substance: BALSALAZIDE DISODIUM
     Dosage: 2250 MG, 3X/DAY [3 CAPSULES (3 TIMES DAILY)]
  13. BUSPIRONE HCL [Concomitant]
     Active Substance: BUSPIRONE HYDROCHLORIDE
     Dosage: 7.5 MG, 2X/DAY [1/2 TAB (MORNING + NIGHT)]
  14. ASPIRIN. [Concomitant]
     Active Substance: ASPIRIN
     Dosage: 81 MG, ALTERNATE DAY
  15. DHA OMEGA 3 [Concomitant]
     Active Substance: OMEGA-3 FATTY ACIDS
     Dosage: UNK UNK, DAILY [DOCOSAHEXAENOIC ACID 500 DHA]/[FISH OIL 800 EPA] 1 TSP DAILY
  16. PLAVIX [Concomitant]
     Active Substance: CLOPIDOGREL BISULFATE
     Dosage: 37.5 MG, ALTERNATE DAY (1/2 TAB EVERY OTHER DAY)
  17. MESALAMINE. [Concomitant]
     Active Substance: MESALAMINE
     Dosage: 60 ML, DAILY
  18. ALPHA LIPOIC ACID [Concomitant]
     Active Substance: .ALPHA.-LIPOIC ACID
     Dosage: 200 MG, DAILY
  19. LEFLUNOMIDE. [Concomitant]
     Active Substance: LEFLUNOMIDE
     Dosage: 20 MG, ALTERNATE DAY (1 TAB EVERY OTHER DAY)
  20. VSL 3 PROBIOTIC [Concomitant]
     Dosage: UNK, DAILY (450 BILLION LIVE BACTERIA 1 PACKET DAILY)
  21. HYDROCORTISONE ENEMA [Concomitant]
     Dosage: 100 MG, DAILY
     Route: 054
  22. LYRICA [Suspect]
     Active Substance: PREGABALIN
     Dosage: 100 MG, 2X/DAY (MORNING + EVENING)
     Route: 048
  23. ACETAMINOPHEN. [Concomitant]
     Active Substance: ACETAMINOPHEN
     Dosage: 1000 MG, AS NEEDED  (2 CAPSULES)

REACTIONS (7)
  - Neuralgia [Not Recovered/Not Resolved]
  - Condition aggravated [Not Recovered/Not Resolved]
  - Myalgia [Not Recovered/Not Resolved]
  - Eyelid oedema [Not Recovered/Not Resolved]
  - Somnolence [Not Recovered/Not Resolved]
  - Peripheral swelling [Not Recovered/Not Resolved]
  - Joint swelling [Not Recovered/Not Resolved]

NARRATIVE: CASE EVENT DATE: 201608
